FAERS Safety Report 10010945 (Version 1)
Quarter: 2014Q1

REPORT INFORMATION
  Report Type: Spontaneous
  Country: US (occurrence: US)
  Receive Date: 20140314
  Receipt Date: 20140314
  Transmission Date: 20141002
  Serious: Yes (Other)
  Sender: FDA-Public Use
  Company Number: US-ENDO PHARMACEUTICALS INC.-OXYC20140004

PATIENT
  Age: 21 Year
  Sex: Male

DRUGS (1)
  1. OXYCODONE HCL 30MG [Suspect]
     Indication: DRUG DEPENDENCE
     Route: 065

REACTIONS (1)
  - Drug dependence [Not Recovered/Not Resolved]
